FAERS Safety Report 5789454-6 (Version None)
Quarter: 2008Q2

REPORT INFORMATION
  Report Type: 
  Country: None (occurrence: None)
  Receive Date: 20080626
  Receipt Date: 20080108
  Transmission Date: 20081010
  Serious: No
  Sender: FDA-Public Use
  Company Number: US-ASTRAZENECA-2008UW00559

PATIENT
  Age: 80 Year
  Sex: Female
  Weight: 68 kg

DRUGS (10)
  1. PULMICORT FLEXHALER [Suspect]
     Indication: ASTHMA
     Dosage: 180 MCG 2 PUFFS BID
     Route: 055
  2. CALCIUM [Concomitant]
  3. OMEGA 3 [Concomitant]
  4. ASPIRIN [Concomitant]
  5. COLCHICINE [Concomitant]
  6. SIMVASTATIN [Concomitant]
  7. VITAMIN D [Concomitant]
  8. FOSAMAX [Concomitant]
  9. EYE DROPS [Concomitant]
  10. PREVACID [Concomitant]

REACTIONS (5)
  - EAR PAIN [None]
  - HEADACHE [None]
  - HUNGER [None]
  - VISUAL ACUITY REDUCED [None]
  - WEIGHT INCREASED [None]
